FAERS Safety Report 10710816 (Version 1)
Quarter: 2015Q1

REPORT INFORMATION
  Report Type: Spontaneous
  Country: NL (occurrence: None)
  Receive Date: 20150112
  Receipt Date: 20150112
  Transmission Date: 20150721
  Serious: Yes (Hospitalization)
  Sender: FDA-Public Use
  Company Number: 2015005580

PATIENT
  Age: 82 Year
  Sex: Male

DRUGS (3)
  1. PANZYTRAT (PANCREATIN) [Concomitant]
  2. FRAGMIN [Suspect]
     Active Substance: DALTEPARIN SODIUM
     Indication: KNEE ARTHROPLASTY
     Dates: start: 20141101
  3. ESOMEPRAZOLE MAGNESIUM. [Concomitant]
     Active Substance: ESOMEPRAZOLE MAGNESIUM

REACTIONS (5)
  - Insomnia [None]
  - Feeling cold [None]
  - Fatigue [None]
  - Decreased appetite [None]
  - Drug withdrawal syndrome [None]

NARRATIVE: CASE EVENT DATE: 20141207
